FAERS Safety Report 6265070-7 (Version None)
Quarter: 2009Q3

REPORT INFORMATION
  Report Type: 
  Country: None (occurrence: None)
  Receive Date: 20090713
  Receipt Date: 20090629
  Transmission Date: 20100115
  Serious: Yes (Other)
  Sender: FDA-Public Use
  Company Number: IL-PFIZER INC-2009235036

PATIENT
  Age: 58 Year

DRUGS (3)
  1. CHAMPIX [Suspect]
     Indication: SMOKING CESSATION THERAPY
     Dosage: 0.5 MG, UNK
  2. CHAMPIX [Suspect]
     Dosage: 1 MG, 2X/DAY
  3. COZAAR [Interacting]
     Indication: BLOOD PRESSURE ABNORMAL

REACTIONS (7)
  - ABNORMAL DREAMS [None]
  - BLOOD PRESSURE DECREASED [None]
  - DRUG INTERACTION [None]
  - FATIGUE [None]
  - FEELING ABNORMAL [None]
  - HEART RATE DECREASED [None]
  - NAUSEA [None]
